FAERS Safety Report 6904170-2 (Version None)
Quarter: 2010Q3

REPORT INFORMATION
  Report Type: 
  Country: None (occurrence: None)
  Receive Date: 20100804
  Receipt Date: 20090319
  Transmission Date: 20110219
  Serious: No
  Sender: FDA-Public Use
  Company Number: US-PFIZER INC-2008155458

PATIENT
  Sex: Male
  Weight: 68 kg

DRUGS (6)
  1. LYRICA [Suspect]
     Indication: SPINAL COLUMN STENOSIS
     Dosage: 25 MG, 1X/DAY
     Route: 048
     Dates: start: 20081211
  2. IBUPROFEN [Concomitant]
     Dosage: UNK
  3. CALCIUM [Concomitant]
     Indication: OSTEOPENIA
     Dosage: UNK
  4. FOSAMAX [Concomitant]
     Indication: OSTEOPENIA
     Dosage: UNK
  5. ASPIRIN [Concomitant]
     Dosage: UNK
  6. FISH OIL [Concomitant]
     Dosage: UNK

REACTIONS (1)
  - SEDATION [None]
